FAERS Safety Report 12843563 (Version 1)
Quarter: 2016Q4

REPORT INFORMATION
  Report Type: Spontaneous
  Country: US (occurrence: US)
  Receive Date: 20161013
  Receipt Date: 20161013
  Transmission Date: 20170207
  Serious: Yes (Death, Life-Threatening, Hospitalization)
  Sender: FDA-Public Use
  Company Number: None

PATIENT
  Age: 80 Year
  Sex: Male
  Weight: 63.5 kg

DRUGS (5)
  1. HALOPERIDOL 5MG RX SYSTEMS INC [Suspect]
     Active Substance: HALOPERIDOL
     Indication: AGITATION
     Dosage: 1 AT HS 1 TAB AT HS 1 X DAY PO/BY MOUTH
     Route: 048
     Dates: start: 20160830, end: 20160903
  2. MEMANTINE. [Concomitant]
     Active Substance: MEMANTINE
  3. DONEPEZIL. [Concomitant]
     Active Substance: DONEPEZIL
  4. HALOPERIDOL 5MG RX SYSTEMS INC [Suspect]
     Active Substance: HALOPERIDOL
     Indication: DEMENTIA
     Dosage: 1 AT HS 1 TAB AT HS 1 X DAY PO/BY MOUTH
     Route: 048
     Dates: start: 20160830, end: 20160903
  5. MULTIVITAMIN [Concomitant]
     Active Substance: VITAMINS

REACTIONS (3)
  - Rash [None]
  - Dysphagia [None]
  - Catatonia [None]

NARRATIVE: CASE EVENT DATE: 20160910
